FAERS Safety Report 10004036 (Version 3)
Quarter: 2014Q1

REPORT INFORMATION
  Report Type: Report from Study
  Country: US (occurrence: US)
  Receive Date: 20140312
  Receipt Date: 20140325
  Transmission Date: 20141002
  Serious: Yes (Hospitalization)
  Sender: FDA-Public Use
  Company Number: US-SA-2013SA103759

PATIENT
  Age: 41 Year
  Sex: Female
  Weight: 80 kg

DRUGS (3)
  1. AUBAGIO [Suspect]
     Indication: MULTIPLE SCLEROSIS
     Dosage: SHE STARTED AUBAGIO 7 MG DAILY ABOUT 2 WEEKS AGO
     Route: 048
     Dates: start: 20130925
  2. AUBAGIO [Suspect]
     Indication: MULTIPLE SCLEROSIS
     Dosage: SHE STARTED AUBAGIO 7 MG DAILY ABOUT 2 WEEKS AGO
     Route: 048
     Dates: start: 20130925
  3. PAXIL [Concomitant]
     Indication: PANIC DISORDER
     Route: 065
     Dates: start: 201308

REACTIONS (14)
  - Muscle spasms [Unknown]
  - Urinary incontinence [Unknown]
  - Anxiety [Unknown]
  - Hyperventilation [Unknown]
  - Rash pruritic [Unknown]
  - Rhinorrhoea [Unknown]
  - Tongue disorder [Unknown]
  - Panic attack [Unknown]
  - Diarrhoea [Unknown]
  - Dry skin [Not Recovered/Not Resolved]
  - Skin exfoliation [Not Recovered/Not Resolved]
  - Skin exfoliation [Not Recovered/Not Resolved]
  - Acne [Not Recovered/Not Resolved]
  - Alopecia [Not Recovered/Not Resolved]
